FAERS Safety Report 9521932 (Version 1)
Quarter: 2013Q3

REPORT INFORMATION
  Report Type: Spontaneous
  Country: GB (occurrence: None)
  Receive Date: 20130911
  Receipt Date: 20130911
  Transmission Date: 20140515
  Serious: Yes (Other)
  Sender: FDA-Public Use
  Company Number: GER/UKI/13/0034467

PATIENT
  Age: 79 Year
  Sex: Male
  Weight: 87.8 kg

DRUGS (17)
  1. AMLODIPINE [Suspect]
     Indication: CARDIAC FAILURE
     Dosage: 5MG, 1 IN 1 D, ORAL
     Route: 048
  2. ADCAL-D3 (LEKOVIT CA) [Concomitant]
  3. ALENDRONIC ACID (ALENDRONIC ACID) [Concomitant]
  4. ASPIRIN (ACETYLSALICYLIC ACID) [Concomitant]
  5. ATENOLOL (ATENOLOL) [Concomitant]
  6. CANDESARTAN (CANDESARTAN) [Concomitant]
  7. DESLORATADINE (DESLORATADINE) [Concomitant]
  8. E-45 (ACUAFIL [Concomitant]
  9. IMDUR (ISOSORBIDE MONONITRATE) [Concomitant]
  10. MOVICOL (POLYETHYL. GLYC. W/POTAS. CHLOR./SOD. BICARB) [Concomitant]
  11. NASONEX (MOMETASONE FUROATE) [Concomitant]
  12. NICORANDIL (NICORANDIL) [Concomitant]
  13. OILATUM (PARAFFIN, LIQUID) [Concomitant]
  14. OMEPRAZOLE (OMEPRAZOLE) [Concomitant]
  15. PARACETAMOL (PARACETAMOL) [Concomitant]
  16. PREDNISOLONE (PREDNISOLONE) [Concomitant]
  17. SIMVASTATIN (SIMVASTATIN) [Concomitant]

REACTIONS (6)
  - Extrapyramidal disorder [None]
  - Constipation [None]
  - Cough [None]
  - Eczema [None]
  - Rhinitis allergic [None]
  - Condition aggravated [None]
